FAERS Safety Report 16190820 (Version 1)
Quarter: 2019Q2

REPORT INFORMATION
  Report Type: Report from Study
  Country: UA (occurrence: UA)
  Receive Date: 20190412
  Receipt Date: 20190412
  Transmission Date: 20190711
  Serious: Yes (Death)
  Sender: FDA-Public Use
  Company Number: UA-ASTRAZENECA-2019SE55561

PATIENT
  Sex: Male

DRUGS (1)
  1. SIMBICORT [Suspect]
     Active Substance: BUDESONIDE\FORMOTEROL FUMARATE
     Dosage: 160 UG, UNKNOWN UNKNOWN
     Route: 055
     Dates: start: 20181010, end: 20181110

REACTIONS (1)
  - Death [Fatal]

NARRATIVE: CASE EVENT DATE: 20181010
